FAERS Safety Report 24004988 (Version 1)
Quarter: 2024Q2

REPORT INFORMATION
  Report Type: Spontaneous
  Country: US (occurrence: None)
  Receive Date: 20240621
  Receipt Date: 20240621
  Transmission Date: 20240715
  Serious: Yes (Other)
  Sender: FDA-Public Use
  Company Number: None

PATIENT
  Age: 62 Year
  Sex: Male
  Weight: 78.3 kg

DRUGS (14)
  1. CYCLOBENZAPRINE HYDROCHLORIDE [Suspect]
     Active Substance: CYCLOBENZAPRINE HYDROCHLORIDE
     Indication: Muscle relaxant therapy
     Dates: start: 20240530, end: 20240531
  2. DEVICE\INSULIN NOS [Concomitant]
     Active Substance: DEVICE\INSULIN NOS
  3. CANNABIS SATIVA SUBSP. INDICA TOP [Concomitant]
     Active Substance: CANNABIS SATIVA SUBSP. INDICA TOP
  4. LOSARTAN POTASSIUM [Concomitant]
  5. PANTOPRAZOLE SODIUM [Concomitant]
  6. PREGABALIN [Concomitant]
     Active Substance: PREGABALIN
  7. ROSUVASTIN CALCIUM [Concomitant]
  8. CLARITIN [Concomitant]
     Active Substance: LORATADINE
  9. EXCEDRIN [Concomitant]
     Active Substance: ACETAMINOPHEN\ASPIRIN\CAFFEINE
  10. MENS VITAMIN [Concomitant]
  11. MIRALAX [Concomitant]
     Active Substance: POLYETHYLENE GLYCOL 3350
  12. COLACE [Concomitant]
  13. HERBALS\TURMERIC [Concomitant]
     Active Substance: HERBALS\TURMERIC
  14. TYLENOL [Concomitant]

REACTIONS (10)
  - Aggression [None]
  - Blood glucose abnormal [None]
  - Depression [None]
  - Dizziness [None]
  - Nausea [None]
  - Tremor [None]
  - Seizure [None]
  - Ear pain [None]
  - Pain in jaw [None]
  - Toothache [None]

NARRATIVE: CASE EVENT DATE: 20240530
